FAERS Safety Report 15941059 (Version 3)
Quarter: 2019Q2

REPORT INFORMATION
  Report Type: Spontaneous
  Country: US (occurrence: US)
  Receive Date: 20190208
  Receipt Date: 20190520
  Transmission Date: 20190711
  Serious: Yes (Other)
  Sender: FDA-Public Use
  Company Number: US-ASTRAZENECA-2018SF22142

PATIENT
  Age: 21892 Day
  Sex: Male

DRUGS (22)
  1. MAGNESIUM OXIDE. [Concomitant]
     Active Substance: MAGNESIUM OXIDE
  2. MUPIROCIN. [Concomitant]
     Active Substance: MUPIROCIN
  3. CORDARONE [Concomitant]
     Active Substance: AMIODARONE HYDROCHLORIDE
  4. LOPRESSOR [Concomitant]
     Active Substance: METOPROLOL TARTRATE
  5. GLIPIZIDE. [Concomitant]
     Active Substance: GLIPIZIDE
  6. XOPENEX [Concomitant]
     Active Substance: LEVALBUTEROL HYDROCHLORIDE
  7. CATAPRES [Concomitant]
     Active Substance: CLONIDINE HYDROCHLORIDE
  8. NIASPAN [Concomitant]
     Active Substance: NIACIN
  9. NEXIUM [Suspect]
     Active Substance: ESOMEPRAZOLE MAGNESIUM
     Route: 048
  10. PRILOSEC OTC [Suspect]
     Active Substance: OMEPRAZOLE MAGNESIUM
     Route: 048
  11. LIPITOR [Concomitant]
     Active Substance: ATORVASTATIN CALCIUM
  12. CLARITIN [Concomitant]
     Active Substance: LORATADINE
  13. TYLENOL [Concomitant]
     Active Substance: ACETAMINOPHEN
  14. FERROUS SULFATE. [Concomitant]
     Active Substance: FERROUS SULFATE
  15. PRILOSEC [Suspect]
     Active Substance: OMEPRAZOLE MAGNESIUM
     Route: 048
  16. PREVACID 24 HR [Suspect]
     Active Substance: LANSOPRAZOLE
     Route: 065
  17. ATROVENT [Concomitant]
     Active Substance: IPRATROPIUM BROMIDE
  18. NEXIUM 24HR [Suspect]
     Active Substance: ESOMEPRAZOLE MAGNESIUM
     Route: 048
  19. ASCORBIC ACID. [Concomitant]
     Active Substance: ASCORBIC ACID
  20. INSULIN ASPART [Concomitant]
     Active Substance: INSULIN ASPART
  21. PREVACID [Suspect]
     Active Substance: LANSOPRAZOLE
     Route: 065
  22. PREVACID IV [Suspect]
     Active Substance: LANSOPRAZOLE
     Route: 065

REACTIONS (5)
  - Acute kidney injury [Unknown]
  - Renal tubular necrosis [Unknown]
  - Renal failure [Unknown]
  - End stage renal disease [Unknown]
  - Chronic kidney disease [Unknown]

NARRATIVE: CASE EVENT DATE: 20111012
